FAERS Safety Report 9203511 (Version 2)
Quarter: 2013Q2

REPORT INFORMATION
  Report Type: Spontaneous
  Country: US (occurrence: US)
  Receive Date: 20130402
  Receipt Date: 20130520
  Transmission Date: 20140414
  Serious: Yes (Death, Other)
  Sender: FDA-Public Use
  Company Number: US-PFIZER INC-2013100669

PATIENT
  Age: 66 Year
  Sex: Male

DRUGS (8)
  1. XALKORI [Suspect]
     Indication: LUNG ADENOCARCINOMA
     Dosage: 250 MG, 2X/DAY (2 MONTHS)
     Route: 048
     Dates: start: 20121127, end: 20130207
  2. XALKORI [Suspect]
     Dosage: 250 MG, 2X/DAY (6-8 WEEKS)
     Route: 048
     Dates: start: 20130106
  3. ALEVE [Concomitant]
     Indication: PAIN
     Dosage: UNK
  4. ASPIRIN [Concomitant]
     Indication: ANTIPLATELET THERAPY
     Dosage: UNK
  5. COMPAZINE [Concomitant]
     Indication: NAUSEA
     Dosage: UNK
  6. COMPAZINE [Concomitant]
     Indication: VOMITING
  7. THIAMINE [Concomitant]
     Indication: ALCOHOLISM
     Dosage: UNK
  8. MORPHINE [Concomitant]
     Indication: PAIN
     Dosage: UNK, PRN

REACTIONS (7)
  - Disease progression [Fatal]
  - Lung adenocarcinoma [Fatal]
  - Pneumonia aspiration [Fatal]
  - Acute respiratory failure [Fatal]
  - Hyponatraemia [Fatal]
  - Atrial fibrillation [Recovering/Resolving]
  - Oedema peripheral [Not Recovered/Not Resolved]
